FAERS Safety Report 10335694 (Version 2)
Quarter: 2014Q3

REPORT INFORMATION
  Report Type: Spontaneous
  Country: US (occurrence: US)
  Receive Date: 20140723
  Receipt Date: 20140723
  Transmission Date: 20150326
  Serious: No
  Sender: FDA-Public Use
  Company Number: US-BRISTOL-MYERS SQUIBB COMPANY-19008705

PATIENT
  Age: 65 Year
  Sex: Male
  Weight: 83.9 kg

DRUGS (3)
  1. COUMADIN [Suspect]
     Active Substance: WARFARIN SODIUM
     Dosage: 1DF=TOOK 5MG TABLETS (1.5 TABLETS) EVERY DAY
     Route: 065
  2. ZOCOR [Concomitant]
     Active Substance: SIMVASTATIN
  3. METOPROLOL [Concomitant]
     Active Substance: METOPROLOL

REACTIONS (2)
  - Blood pressure increased [Unknown]
  - International normalised ratio decreased [Unknown]
